FAERS Safety Report 9319331 (Version 3)
Quarter: 2013Q3

REPORT INFORMATION
  Report Type: Spontaneous
  Country: US (occurrence: None)
  Receive Date: 20130520
  Receipt Date: 20130912
  Transmission Date: 20140515
  Serious: Yes (Hospitalization)
  Sender: FDA-Public Use
  Company Number: 2012031162

PATIENT
  Age: 54 Year
  Sex: Female
  Weight: 92.08 kg

DRUGS (45)
  1. PRIVIGEN [Suspect]
     Indication: HYPOGAMMAGLOBULINAEMIA
     Dosage: 35 G 1X/2 WEEKS, 5 MG VIAL; INFUSE 4 HOURS INTRAVENOUS (NOT OTHERWISE SPECIFIED)
     Dates: start: 20080620
  2. CYMBALTA (DULOXETINE HYDROCHLORIDE) [Concomitant]
  3. DEXAMETHASONE (DEXAMETHASONE) [Concomitant]
  4. CARBAMAZEPINE (CARBAMAZEPINE) [Concomitant]
  5. CLONAZEPAM (CLONAZEPAM) [Concomitant]
  6. ZOFRAN (ONDANSETRON) [Concomitant]
  7. LAMICTAL (LAMOTRIGINE) [Concomitant]
  8. SYMBICORT [Concomitant]
  9. RHINOCORT AQUA SPRAY (BUDESONIDE) [Concomitant]
  10. SEROQUEL (QUETIAPINE) [Concomitant]
  11. IPRATROPIUM BROMIDE (IPRATROPIUM BROMIDE) [Concomitant]
  12. BENICAR HCT (BENICAR HCT) [Concomitant]
  13. ALBUTEROL (SALBUTAMOL) [Concomitant]
  14. TOPAMAX (TOPIRAMATE) [Concomitant]
  15. PHENERGAN (PROMETHAZINE) [Concomitant]
  16. FIORICET (AXOTAL /00727001/) [Concomitant]
  17. PRILOSEC [Concomitant]
  18. ACETAMINOPHEN WITH CODEINE (PARACETAMOL) [Concomitant]
  19. CODEINE (CODEINE) [Concomitant]
  20. LOSARTAN POTASSIUM (LOSARTAN POTASSIUM) [Concomitant]
  21. ASPIRIN (ACETYLSALICYLIC ACID) [Concomitant]
  22. NORTRIPTYLINE (NORTRIPTYLINE) [Concomitant]
  23. ZANAFLEX (TIZANIDINE HYDROCHLORIDE) [Concomitant]
  24. ZAFIRLUKAST (ZAFIRLUKAST) [Concomitant]
  25. PULMICORT (BUDESONIDE) [Concomitant]
  26. LOVASTATIN (LOVASTATIN) [Concomitant]
  27. CHERATUSSIN AC (CHERATUSSIN AC) [Concomitant]
  28. ACETAMINOPHEN (PARACETAMOL) [Concomitant]
  29. DIPHENHYDRAMINE (DIPHENHYDRAMINE) [Concomitant]
  30. SODIUM CHLORIDE [Concomitant]
  31. NORMAL SALINE (SODIUM CHLORIDE) [Concomitant]
  32. LOSARTAN (LOSARTAN) [Concomitant]
  33. NORTRIPTYLINE (NORTRIPTYLINE) [Concomitant]
  34. DEXTROS 5% (GLUCOSE) [Concomitant]
  35. TREXIMET (ANTIMIGRAINE PREPARATIONS) [Concomitant]
  36. CHERATUSSIN (CHERATUSSIN /01381201/) [Concomitant]
  37. EPI-PEN (EPINEPHRINE) [Concomitant]
  38. OXYGEN (OXYGEN) [Concomitant]
  39. ACETA (PARACETAMOL) [Concomitant]
  40. VICODIN ES (VICODIN) [Concomitant]
  41. PHENERGAN (PROMETHAZINE) [Concomitant]
  42. DEXAMETHASONE (DEXAMETHASONE) [Concomitant]
  43. TREXIMET (ALL OTHER THERAPEUTIC PRODUCTS) [Concomitant]
  44. COZAAR (LOSARTAN POTASSIUM) [Concomitant]
  45. LOPRESSOR (METOPROLOL TARTRATE) [Concomitant]

REACTIONS (6)
  - Headache [None]
  - Nausea [None]
  - Fatigue [None]
  - Pneumonia [None]
  - Pain [None]
  - Fall [None]
